FAERS Safety Report 19945229 (Version 1)
Quarter: 2021Q4

REPORT INFORMATION
  Report Type: Spontaneous
  Country: GB (occurrence: GB)
  Receive Date: 20211012
  Receipt Date: 20211012
  Transmission Date: 20220303
  Serious: Yes (Death, Hospitalization, Other)
  Sender: FDA-Public Use
  Company Number: GB-RISING PHARMA HOLDINGS, INC.-2021RIS000082

PATIENT
  Age: 14 Year
  Sex: Female

DRUGS (3)
  1. HYDROXYCHLOROQUINE SULFATE [Suspect]
     Active Substance: HYDROXYCHLOROQUINE SULFATE
     Indication: Intentional overdose
     Dosage: 200 MILLIGRAM OF 60 TABLETS
     Route: 065
  2. NAPROXEN [Concomitant]
     Active Substance: NAPROXEN
     Indication: Overdose
     Dosage: 750 MILLIGRAM
     Route: 065
  3. IBUPROFEN [Concomitant]
     Active Substance: IBUPROFEN
     Indication: Overdose
     Dosage: 200 MILLIGRAM
     Route: 065

REACTIONS (8)
  - Metabolic acidosis [Fatal]
  - Renal failure [Fatal]
  - Pulmonary oedema [Fatal]
  - Toxicity to various agents [Fatal]
  - Overdose [Fatal]
  - Cardiac arrest [Fatal]
  - Hypotension [Fatal]
  - Hypokalaemia [Fatal]
